FAERS Safety Report 25552738 (Version 3)
Quarter: 2025Q3

REPORT INFORMATION
  Report Type: Spontaneous
  Country: JP (occurrence: JP)
  Receive Date: 20250715
  Receipt Date: 20250825
  Transmission Date: 20251020
  Serious: Yes (Other)
  Sender: SANOFI AVENTIS
  Company Number: JP-SAKK-2025SA193289AA

PATIENT
  Age: 5 Decade
  Sex: Female

DRUGS (1)
  1. DUPIXENT [Suspect]
     Active Substance: DUPILUMAB
     Indication: Chronic rhinosinusitis with nasal polyps
     Dosage: 300/DAY, QOW
     Route: 058
     Dates: start: 20250430, end: 20250611

REACTIONS (3)
  - Eosinophilic granulomatosis with polyangiitis [Recovered/Resolved]
  - Cough [Recovered/Resolved]
  - Eosinophil percentage increased [Recovering/Resolving]

NARRATIVE: CASE EVENT DATE: 20250514
